FAERS Safety Report 4391118-0 (Version None)
Quarter: 2004Q3

REPORT INFORMATION
  Report Type: 
  Country: None (occurrence: None)
  Receive Date: 20040707
  Receipt Date: 20040702
  Transmission Date: 20050211
  Serious: Yes (Hospitalization)
  Sender: FDA-Public Use
  Company Number: GB-ROCHE-372709

PATIENT
  Age: 71 Year
  Sex: Male
  Weight: 81 kg

DRUGS (2)
  1. CAPECITABINE [Suspect]
     Dosage: GIVEN FROM DAYS ONE TO FOURTEEN OF A THREE WEEK CYCLE.
     Route: 048
  2. GEMCITABINE [Suspect]
     Dosage: GIVEN ON DAYS ONE AND EIGHT OF A THREE WEEK CYCLE.
     Route: 042

REACTIONS (3)
  - BLOOD BILIRUBIN INCREASED [None]
  - SEPSIS [None]
  - STENT OCCLUSION [None]
